FAERS Safety Report 6662982-7 (Version None)
Quarter: 2010Q1

REPORT INFORMATION
  Report Type: 
  Country: None (occurrence: None)
  Receive Date: 20100322
  Receipt Date: 20100309
  Transmission Date: 20100710
  Serious: No
  Sender: FDA-Public Use
  Company Number: 2010-00324

PATIENT
  Age: 85 Year
  Sex: Male
  Weight: 66.6788 kg

DRUGS (2)
  1. ZICAM COLD REMEDY ORAL MIST [Suspect]
     Dosage: 4-5 X/DAY, 2.5 DAYS; APX 2WKS AGO FOR 2.5 DAYS
  2. LOVASTATIN [Concomitant]

REACTIONS (1)
  - AGEUSIA [None]
